FAERS Safety Report 15222903 (Version 1)
Quarter: 2018Q3

REPORT INFORMATION
  Report Type: Report from Study
  Country: US (occurrence: US)
  Receive Date: 20180731
  Receipt Date: 20180731
  Transmission Date: 20181010
  Serious: Yes (Death, Hospitalization)
  Sender: FDA-Public Use
  Company Number: US-ADAMAS PHARMA, LLC-2018ADA01457

PATIENT
  Age: 81 Year
  Sex: Female

DRUGS (5)
  1. RASAGILINE. [Concomitant]
     Active Substance: RASAGILINE
  2. GOCOVRI [Suspect]
     Active Substance: AMANTADINE
     Dosage: 274 MG, 1X/DAY AT BEDTIME
     Route: 048
     Dates: start: 201807, end: 201807
  3. DRONABINOL. [Concomitant]
     Active Substance: DRONABINOL
  4. GOCOVRI [Suspect]
     Active Substance: AMANTADINE
     Indication: DYSKINESIA
     Dosage: 274 MG, 1X/DAY AT BEDTIME
     Route: 048
     Dates: start: 20180518, end: 201807
  5. CARBIDOPA/LEVODOPA [Concomitant]
     Active Substance: CARBIDOPA\LEVODOPA

REACTIONS (8)
  - Electrolyte imbalance [Recovering/Resolving]
  - Fall [Recovering/Resolving]
  - Hallucination [Unknown]
  - Death [Fatal]
  - Dehydration [Recovering/Resolving]
  - Incoherent [Not Recovered/Not Resolved]
  - Hypophagia [Recovering/Resolving]
  - Asthenia [Recovering/Resolving]

NARRATIVE: CASE EVENT DATE: 2018
